FAERS Safety Report 7508746-3 (Version None)
Quarter: 2011Q2

REPORT INFORMATION
  Report Type: 
  Country: None (occurrence: None)
  Receive Date: 20110527
  Receipt Date: 20101210
  Transmission Date: 20111010
  Serious: Yes (Hospitalization)
  Sender: FDA-Public Use
  Company Number: A0899315A

PATIENT
  Age: 86 Year
  Sex: Male

DRUGS (3)
  1. PULMICORT [Concomitant]
  2. TRIAMTERENE [Concomitant]
  3. VENTOLIN [Suspect]
     Indication: ASTHMA
     Dosage: 2PUFF SEE DOSAGE TEXT
     Route: 055
     Dates: end: 20101101

REACTIONS (1)
  - HEART RATE INCREASED [None]
